FAERS Safety Report 17194288 (Version 2)
Quarter: 2019Q4

REPORT INFORMATION
  Report Type: Spontaneous
  Country: KZ (occurrence: KZ)
  Receive Date: 20191224
  Receipt Date: 20191226
  Transmission Date: 20200122
  Serious: Yes (Death, Other)
  Sender: FDA-Public Use
  Company Number: KZ-SA-2019SA355472

PATIENT
  Age: 56 Year
  Sex: Male

DRUGS (15)
  1. LISINOPRIL. [Concomitant]
     Active Substance: LISINOPRIL
     Dosage: 10 MG, QD ((ONCE A DAY DURING 11 DAYS)
     Route: 048
  2. SODIUM CHLORIDE. [Concomitant]
     Active Substance: SODIUM CHLORIDE
     Dosage: 400 ML ONCE A DAY DURING A 1 DAY
     Route: 042
  3. CEFUROXIME. [Concomitant]
     Active Substance: CEFUROXIME
     Dosage: 750 MG - 1500 MG TID 3 TIMES A DAY FOR 11 DAYS
     Route: 030
  4. BISOPROLOL [Concomitant]
     Active Substance: BISOPROLOL
     Dosage: 2.5 MG, QD DURING 11 DAYS
     Route: 048
     Dates: start: 20180518, end: 20180531
  5. KETOPROFEN. [Concomitant]
     Active Substance: KETOPROFEN
     Dosage: 100 MG / 2 ML BID DURING 5 DAYS
     Route: 030
     Dates: start: 20180518, end: 20180523
  6. FERROVIT [IRON] [Concomitant]
     Dosage: 100 MG, QD ONCE A DAY DURING 6 DAYS
     Route: 048
  7. CLEXANE [Suspect]
     Active Substance: ENOXAPARIN SODIUM
     Dosage: 0.4 ML, BID
     Route: 058
     Dates: start: 20180523, end: 20180601
  8. DIPHENHYDRAMIN [Concomitant]
     Active Substance: DIPHENHYDRAMINE
     Dosage: 1 ML, QD (DURING 2 DAYS)
     Route: 030
     Dates: start: 20180523, end: 20180524
  9. ATROPINE SULFATE. [Concomitant]
     Active Substance: ATROPINE SULFATE
     Dosage: 1 MG/ML
     Route: 030
  10. SODIUM CHLORIDE. [Concomitant]
     Active Substance: SODIUM CHLORIDE
     Dosage: 800 ML, QD ONCE A DAY DURING 2 DAYS
     Route: 042
  11. KETOROLAK [Concomitant]
     Dosage: 30 MG/1 ML, BID DURING 4 DAY
     Route: 030
     Dates: start: 20180523, end: 20180528
  12. AMBRO [AMBROXOL HYDROCHLORIDE] [Concomitant]
     Dosage: 120 MG, TID 30MG/5ML (DURING 10 DAYS)
     Route: 048
  13. DIPHTHERIA AND TETANUS TOXOIDS [Concomitant]
     Active Substance: DIPHTHERIA AND TETANUS TOXOIDS
     Dosage: 2 DF, QD  (1 ML (2 DOSES) ONCE A DAY DURING 1 DAY)
     Route: 058
     Dates: start: 20180518, end: 20180523
  14. CANDAZOL [CLOTRIMAZOLE] [Concomitant]
     Dosage: 100 MG, BID DURING 4 DAYS
     Route: 048
     Dates: start: 20180518, end: 20180523
  15. CIPROX [CIPROFLOXACIN] [Concomitant]
     Active Substance: CIPROFLOXACIN
     Dosage: 100 ML, QD DURING 7 DAYS
     Route: 042

REACTIONS (10)
  - Multiple organ dysfunction syndrome [Unknown]
  - Blood loss anaemia [Unknown]
  - Obesity [Unknown]
  - Melaena [Recovered/Resolved]
  - Melaena [Unknown]
  - Respiratory failure [Unknown]
  - Hypovolaemia [Unknown]
  - Gastrointestinal haemorrhage [Fatal]
  - Off label use [Unknown]
  - Cardiac failure [Unknown]

NARRATIVE: CASE EVENT DATE: 20180523
